FAERS Safety Report 9602815 (Version 1)
Quarter: 2013Q4

REPORT INFORMATION
  Report Type: Spontaneous
  Country: US (occurrence: None)
  Receive Date: 20131003
  Receipt Date: 20131003
  Transmission Date: 20140711
  Serious: Yes (Other)
  Sender: FDA-Public Use
  Company Number: 2013AP008337

PATIENT
  Age: 60 Year
  Sex: Female

DRUGS (3)
  1. ATORVASTATIN [Suspect]
     Indication: CATHETERISATION CARDIAC
     Route: 048
  2. ACIPHEX [Concomitant]
  3. VANOS [Concomitant]

REACTIONS (1)
  - Diabetes mellitus [None]
